FAERS Safety Report 17081813 (Version 1)
Quarter: 2019Q4

REPORT INFORMATION
  Report Type: Spontaneous
  Country: US (occurrence: US)
  Receive Date: 20191127
  Receipt Date: 20191127
  Transmission Date: 20200122
  Serious: No
  Sender: FDA-Public Use
  Company Number: US-UCBSA-2018057136

PATIENT
  Sex: Female

DRUGS (3)
  1. VIMPAT [Suspect]
     Active Substance: LACOSAMIDE
     Dosage: 25 MG, ONCE DAILY (QD)
     Dates: start: 2018, end: 2018
  2. VIMPAT [Suspect]
     Active Substance: LACOSAMIDE
     Indication: SEIZURE
     Dosage: 25 MG, ONCE DAILY (QD)
     Dates: start: 2015
  3. VIMPAT [Suspect]
     Active Substance: LACOSAMIDE
     Dosage: 25 MG, ONCE DAILY (QD)
     Dates: start: 2018

REACTIONS (5)
  - Dizziness [Unknown]
  - Product quality issue [Unknown]
  - Off label use [Unknown]
  - Hyperhidrosis [Unknown]
  - Underdose [Unknown]

NARRATIVE: CASE EVENT DATE: 2018
